FAERS Safety Report 19595827 (Version 1)
Quarter: 2021Q3

REPORT INFORMATION
  Report Type: Spontaneous
  Country: US (occurrence: US)
  Receive Date: 20210722
  Receipt Date: 20210722
  Transmission Date: 20211014
  Serious: No
  Sender: FDA-Public Use
  Company Number: US-COVIS PHARMA GMBH-2021COV23327

PATIENT

DRUGS (1)
  1. ALVESCO [Suspect]
     Active Substance: CICLESONIDE
     Indication: ASTHMA
     Route: 065

REACTIONS (1)
  - Gingival bleeding [Unknown]
